FAERS Safety Report 12606812 (Version 4)
Quarter: 2016Q4

REPORT INFORMATION
  Report Type: Report from Study
  Country: US (occurrence: US)
  Receive Date: 20160729
  Receipt Date: 20161109
  Transmission Date: 20170207
  Serious: Yes (Hospitalization)
  Sender: FDA-Public Use
  Company Number: US-ACTELION-A-US2016-130534

PATIENT
  Age: 71 Year
  Sex: Female

DRUGS (2)
  1. TRACLEER [Suspect]
     Active Substance: BOSENTAN
     Indication: PULMONARY ARTERIAL HYPERTENSION
     Dosage: 125 MG, BID
     Route: 048
     Dates: start: 20141201
  2. ELIQUIS [Concomitant]
     Active Substance: APIXABAN
     Dosage: 2.5 MG, QD

REACTIONS (24)
  - Fatigue [Unknown]
  - Decreased appetite [Unknown]
  - Atrial fibrillation [Unknown]
  - Condition aggravated [Unknown]
  - Hemiplegia [Unknown]
  - Asthenia [Unknown]
  - Nocturnal dyspnoea [Unknown]
  - Aphasia [Unknown]
  - Dyspnoea [Unknown]
  - Cardiac failure congestive [Unknown]
  - Wheezing [Unknown]
  - Fluid retention [Unknown]
  - Diarrhoea [Unknown]
  - Blood calcium increased [Unknown]
  - Pulmonary arterial hypertension [Unknown]
  - Palpitations [Unknown]
  - Cardiac disorder [Unknown]
  - Renal failure [Unknown]
  - Cough [Unknown]
  - Dysphagia [Unknown]
  - Blood potassium decreased [Unknown]
  - Cardiac function test abnormal [Unknown]
  - Cerebrovascular accident [Unknown]
  - Apallic syndrome [Unknown]
